FAERS Safety Report 19985541 (Version 3)
Quarter: 2021Q4

REPORT INFORMATION
  Report Type: Spontaneous
  Country: JP (occurrence: JP)
  Receive Date: 20211021
  Receipt Date: 20211116
  Transmission Date: 20220303
  Serious: Yes (Other)
  Sender: FDA-Public Use
  Company Number: JP-TAKEDA-2021TJP107569

PATIENT

DRUGS (4)
  1. ROZEREM [Suspect]
     Active Substance: RAMELTEON
     Indication: Initial insomnia
     Dosage: 8 MILLIGRAM, QD
     Route: 048
  2. VIMPAT [Concomitant]
     Active Substance: LACOSAMIDE
     Dosage: UNK
     Route: 065
  3. BENZALIN [Concomitant]
     Dosage: 10 MILLIGRAM
     Route: 065
  4. BENZALIN [Concomitant]
     Dosage: 5 MILLIGRAM
     Route: 065

REACTIONS (1)
  - Epilepsy [Recovered/Resolved]

NARRATIVE: CASE EVENT DATE: 20211005
